FAERS Safety Report 23717806 (Version 1)
Quarter: 2024Q2

REPORT INFORMATION
  Report Type: Spontaneous
  Country: US (occurrence: None)
  Receive Date: 20240405
  Receipt Date: 20240405
  Transmission Date: 20240716
  Serious: Yes (Hospitalization)
  Sender: FDA-Public Use
  Company Number: None

PATIENT
  Age: 44 Year
  Sex: Female
  Weight: 81 kg

DRUGS (2)
  1. CYANOCOBALAMIN\SEMAGLUTIDE [Suspect]
     Active Substance: CYANOCOBALAMIN\SEMAGLUTIDE
     Indication: Weight decreased
     Dosage: OTHER QUANTITY : 0.05 ML?OTHER FREQUENCY : WEEKLY?OTHER ROUTE : INJECTION?
     Route: 050
     Dates: start: 20230221, end: 20230320
  2. BUPROPION [Concomitant]
     Active Substance: BUPROPION

REACTIONS (4)
  - Abdominal pain upper [None]
  - Diarrhoea [None]
  - Hypokalaemia [None]
  - Cholecystectomy [None]

NARRATIVE: CASE EVENT DATE: 20230323
